FAERS Safety Report 17142362 (Version 2)
Quarter: 2020Q1

REPORT INFORMATION
  Report Type: Report from Study
  Country: AR (occurrence: AR)
  Receive Date: 20191211
  Receipt Date: 20200211
  Transmission Date: 20200409
  Serious: Yes (Other)
  Sender: FDA-Public Use
  Company Number: AR-BRISTOL-MYERS SQUIBB COMPANY-BMS-2019-107246

PATIENT
  Age: 66 Year
  Sex: Male

DRUGS (2)
  1. APIXABAN [Suspect]
     Active Substance: APIXABAN
     Indication: PRODUCT USED FOR UNKNOWN INDICATION
     Dosage: 1 DOSAGE FORM, QD
     Route: 065
     Dates: start: 20191104
  2. APIXABAN [Suspect]
     Active Substance: APIXABAN
     Indication: SYNCOPE
     Dosage: 5 MILLIGRAM, BID
     Route: 065
     Dates: start: 20190116, end: 20191104

REACTIONS (3)
  - Intentional product misuse [Unknown]
  - Intentional product use issue [Unknown]
  - Arrhythmia [Unknown]

NARRATIVE: CASE EVENT DATE: 20191104
